FAERS Safety Report 5170008-X (Version None)
Quarter: 2006Q4

REPORT INFORMATION
  Report Type: 
  Country: None (occurrence: None)
  Receive Date: 20061212
  Receipt Date: 20061206
  Transmission Date: 20070319
  Serious: Yes (Hospitalization)
  Sender: FDA-Public Use
  Company Number: IT-GLAXOSMITHKLINE-B0449979A

PATIENT
  Age: 16 Year
  Sex: Female

DRUGS (1)
  1. AUGMENTIN '125' [Suspect]
     Indication: PHARYNGITIS
     Dosage: 1MG TWICE PER DAY
     Dates: start: 20040529, end: 20040530

REACTIONS (1)
  - TOXIC SKIN ERUPTION [None]
